FAERS Safety Report 24417842 (Version 1)
Quarter: 2024Q4

REPORT INFORMATION
  Report Type: Spontaneous
  Country: US (occurrence: US)
  Receive Date: 20241009
  Receipt Date: 20241009
  Transmission Date: 20250115
  Serious: No
  Sender: PFIZER
  Company Number: US-PFIZER INC-202400272045

PATIENT
  Age: 61 Year
  Sex: Female
  Weight: 78.2 kg

DRUGS (5)
  1. ADCETRIS [Suspect]
     Active Substance: BRENTUXIMAB VEDOTIN
     Dosage: 110MG IV (INTRAVENOUS) Q2W (EVERY 2 WEEKS)
     Route: 042
  2. ADCETRIS [Suspect]
     Active Substance: BRENTUXIMAB VEDOTIN
     Dosage: 93 MG
  3. DOXORUBICIN [Concomitant]
     Active Substance: DOXORUBICIN
     Dosage: UNK
  4. VINBLASTINE [Concomitant]
     Active Substance: VINBLASTINE
     Dosage: UNK
  5. DACARBAZINE [Concomitant]
     Active Substance: DACARBAZINE
     Dosage: UNK

REACTIONS (1)
  - Weight decreased [Not Recovered/Not Resolved]
